FAERS Safety Report 23354714 (Version 7)
Quarter: 2025Q4

REPORT INFORMATION
  Report Type: Report from Study
  Country: CA (occurrence: CA)
  Receive Date: 20240101
  Receipt Date: 20251207
  Transmission Date: 20260118
  Serious: Yes (Other)
  Sender: TAKEDA
  Company Number: CA-TAKEDA-2023TUS124745

PATIENT
  Age: 62 Year
  Sex: Female
  Weight: 69.6 kg

DRUGS (6)
  1. VEDOLIZUMAB [Suspect]
     Active Substance: VEDOLIZUMAB
     Indication: Colitis ulcerative
     Dosage: 300 MILLIGRAM
  2. VEDOLIZUMAB [Suspect]
     Active Substance: VEDOLIZUMAB
     Dosage: 300 MILLIGRAM
  3. VEDOLIZUMAB [Suspect]
     Active Substance: VEDOLIZUMAB
     Dosage: 300 MILLIGRAM
  4. IMURAN [Concomitant]
     Active Substance: AZATHIOPRINE
     Dosage: UNK
  5. PREDNISONE [Concomitant]
     Active Substance: PREDNISONE
     Dosage: UNK
  6. Cortiment [Concomitant]
     Dosage: 9 MILLIGRAM, QD
     Dates: start: 20251117

REACTIONS (7)
  - Haematochezia [Unknown]
  - Colitis ulcerative [Recovering/Resolving]
  - Mucous stools [Unknown]
  - Frequent bowel movements [Unknown]
  - Abdominal pain [Unknown]
  - Abdominal distension [Unknown]
  - Stress [Recovering/Resolving]

NARRATIVE: CASE EVENT DATE: 20231202
